FAERS Safety Report 6738194-5 (Version None)
Quarter: 2010Q2

REPORT INFORMATION
  Report Type: 
  Country: None (occurrence: None)
  Receive Date: 20100524
  Receipt Date: 20100514
  Transmission Date: 20101027
  Serious: Yes (Hospitalization)
  Sender: FDA-Public Use
  Company Number: A0690180A

PATIENT
  Age: 68 Year
  Sex: Female
  Weight: 106.4 kg

DRUGS (2)
  1. AVANDIA [Suspect]
     Dosage: 4MG PER DAY
     Route: 048
     Dates: start: 20050511, end: 20070423
  2. AVANDAMET [Suspect]
     Route: 048
     Dates: start: 20040119, end: 20050511

REACTIONS (2)
  - CARDIAC FAILURE CONGESTIVE [None]
  - OEDEMA PERIPHERAL [None]
